FAERS Safety Report 7910566-2 (Version None)
Quarter: 2011Q4

REPORT INFORMATION
  Report Type: 
  Country: None (occurrence: None)
  Receive Date: 20111111
  Receipt Date: 20111109
  Transmission Date: 20120403
  Serious: Yes (Other)
  Sender: FDA-Public Use
  Company Number: US-PFIZER INC-2011276929

PATIENT
  Sex: Female
  Weight: 58.957 kg

DRUGS (2)
  1. SYNTHROID [Concomitant]
     Dosage: UNK
  2. ZOLOFT [Suspect]
     Indication: DEPRESSION
     Dosage: 25 MG, DAILY
     Route: 048
     Dates: start: 19980101, end: 20111030

REACTIONS (5)
  - INFLAMMATION [None]
  - OEDEMA PERIPHERAL [None]
  - TENDONITIS [None]
  - FLUID RETENTION [None]
  - ECZEMA [None]
